FAERS Safety Report 9408130 (Version 1)
Quarter: 2013Q3

REPORT INFORMATION
  Report Type: Report from Study
  Country: US (occurrence: US)
  Receive Date: 20130718
  Receipt Date: 20130718
  Transmission Date: 20140515
  Serious: Yes (Other)
  Sender: FDA-Public Use
  Company Number: US-ROCHE-1237696

PATIENT
  Age: 57 Year
  Sex: Female

DRUGS (5)
  1. ZELBORAF [Suspect]
     Indication: PRODUCT USED FOR UNKNOWN INDICATION
     Route: 048
     Dates: start: 20130508, end: 20130516
  2. ZELBORAF [Suspect]
     Route: 048
     Dates: start: 20130530, end: 20130605
  3. ZELBORAF [Suspect]
     Route: 048
     Dates: start: 20130606
  4. ACETAMINOPHEN [Concomitant]
     Route: 065
  5. HYDROCODONE HCL [Concomitant]
     Route: 065

REACTIONS (3)
  - Arthralgia [Recovering/Resolving]
  - Thrombocytopenia [Unknown]
  - Leukopenia [Unknown]
